FAERS Safety Report 24719696 (Version 2)
Quarter: 2025Q1

REPORT INFORMATION
  Report Type: Report from Study
  Country: US (occurrence: US)
  Receive Date: 20241211
  Receipt Date: 20250128
  Transmission Date: 20250408
  Serious: Yes (Hospitalization, Other)
  Sender: ABBVIE
  Company Number: US-ABBVIE-6036852

PATIENT
  Age: 69 Year
  Sex: Female
  Weight: 55.338 kg

DRUGS (5)
  1. HUMIRA [Suspect]
     Active Substance: ADALIMUMAB
     Indication: Uveitis
     Dosage: FORM STRENGTH: 40 MILLIGRAM
     Route: 058
     Dates: start: 20240709
  2. HUMIRA [Suspect]
     Active Substance: ADALIMUMAB
     Route: 058
  3. ATORVASTATIN [Concomitant]
     Active Substance: ATORVASTATIN
     Indication: Product used for unknown indication
  4. PANTOPRAZOLE [Concomitant]
     Active Substance: PANTOPRAZOLE
     Indication: Gastrooesophageal reflux disease
  5. FLUOXETINE [Concomitant]
     Active Substance: FLUOXETINE HYDROCHLORIDE
     Indication: Product used for unknown indication

REACTIONS (9)
  - Intestinal obstruction [Recovering/Resolving]
  - Gastrointestinal disorder [Recovering/Resolving]
  - Obstruction gastric [Recovering/Resolving]
  - Gallbladder enlargement [Recovered/Resolved]
  - Weight increased [Unknown]
  - Abdominal pain [Recovering/Resolving]
  - Cholecystitis [Recovered/Resolved]
  - Vomiting [Recovering/Resolving]
  - Nausea [Recovering/Resolving]

NARRATIVE: CASE EVENT DATE: 20240901
